FAERS Safety Report 8561735-2 (Version None)
Quarter: 2012Q3

REPORT INFORMATION
  Report Type: 
  Country: None (occurrence: None)
  Receive Date: 20120802
  Receipt Date: 20120730
  Transmission Date: 20120928
  Serious: Yes (Hospitalization, Disabling)
  Sender: FDA-Public Use
  Company Number: US-GILEAD-2012-0054822

PATIENT
  Sex: Female

DRUGS (21)
  1. ALPHAGAN P [Concomitant]
  2. ACETAMINOPHEN [Concomitant]
  3. STALEVO 100 [Concomitant]
  4. MULTI-VITAMINS [Concomitant]
  5. GABAPENTIN [Concomitant]
  6. CELLCEPT [Concomitant]
  7. PANTOPRAZOLE SODIUM [Concomitant]
  8. PREDNISONE [Concomitant]
  9. TUMS                               /00193601/ [Concomitant]
  10. LANTUS [Concomitant]
  11. METOCLOPRAMIDE HYDROCHLORIDE [Concomitant]
  12. CITALOPRAM HYDROBROMIDE [Concomitant]
  13. PROGRAF [Concomitant]
  14. LETAIRIS [Suspect]
     Indication: PULMONARY HYPERTENSION
     Dosage: 5 MG, UNK
     Route: 048
     Dates: start: 20120418
  15. ASPIRIN [Concomitant]
  16. DOCUSATE SODIUM [Concomitant]
  17. HUMALOG [Concomitant]
  18. REGLAN [Concomitant]
  19. MAGNESIUM GLUCONATE [Concomitant]
  20. XALATAN [Concomitant]
  21. FUROSEMIDE [Concomitant]

REACTIONS (4)
  - ANAEMIA [None]
  - CARDIORENAL SYNDROME [None]
  - PULMONARY OEDEMA [None]
  - RENAL FAILURE ACUTE [None]
